FAERS Safety Report 8604528 (Version 3)
Quarter: 2012Q4

REPORT INFORMATION
  Report Type: 
  Country: US (occurrence: US)
  Receive Date: 20120608
  Receipt Date: 20121114
  Transmission Date: 20130627
  Serious: No
  Sender: FDA-Public Use
  Company Number: PHEH2012US011408

PATIENT
  Age: 82 Year
  Sex: Female

DRUGS (3)
  1. ZOMETA [Suspect]
     Indication: MULTIPLE MYELOMA
     Route: 042
     Dates: start: 20110310, end: 20120505
  2. ZOMETA [Suspect]
     Route: 042
     Dates: start: 20110311
  3. ZOMETA [Suspect]
     Route: 042
     Dates: start: 20110310

REACTIONS (4)
  - Vein disorder [Not Recovered/Not Resolved]
  - Temporomandibular joint syndrome [Unknown]
  - Cold sweat [Not Recovered/Not Resolved]
  - Pain in jaw [Recovering/Resolving]
